FAERS Safety Report 19817168 (Version 3)
Quarter: 2021Q4

REPORT INFORMATION
  Report Type: Report from Study
  Country: ES (occurrence: ES)
  Receive Date: 20210910
  Receipt Date: 20211021
  Transmission Date: 20220303
  Serious: Yes (Disabling)
  Sender: FDA-Public Use
  Company Number: ES-AKCEA THERAPEUTICS, INC.-2021IS001310

PATIENT
  Age: 36 Year
  Sex: Male
  Weight: 56.14 kg

DRUGS (7)
  1. TEGSEDI [Suspect]
     Active Substance: INOTERSEN SODIUM
     Indication: Hereditary neuropathic amyloidosis
     Route: 058
     Dates: start: 20210412
  2. DEVICE [Suspect]
     Active Substance: DEVICE
  3. TEGSEDI [Suspect]
     Active Substance: INOTERSEN SODIUM
     Route: 058
  4. TEGSEDI [Suspect]
     Active Substance: INOTERSEN SODIUM
     Route: 058
     Dates: end: 20210818
  5. ALMAX /00595201/ [Concomitant]
     Route: 048
  6. TADALAFILO [Concomitant]
     Route: 048
  7. TEGSEDI [Suspect]
     Active Substance: INOTERSEN SODIUM

REACTIONS (28)
  - Oedema peripheral [Recovering/Resolving]
  - Face oedema [Not Recovered/Not Resolved]
  - Injection site pruritus [Recovered/Resolved]
  - Injection site erythema [Not Recovered/Not Resolved]
  - Injection site nodule [Not Recovered/Not Resolved]
  - Gastrooesophageal reflux disease [Not Recovered/Not Resolved]
  - Dyspepsia [Not Recovered/Not Resolved]
  - Flatulence [Not Recovered/Not Resolved]
  - Constipation [Recovered/Resolved]
  - Abdominal discomfort [Not Recovered/Not Resolved]
  - Food intolerance [Unknown]
  - Gastrointestinal disorder [Unknown]
  - Eyelid oedema [Not Recovered/Not Resolved]
  - Eye discharge [Recovered/Resolved]
  - Eye haemorrhage [Unknown]
  - Lip oedema [Not Recovered/Not Resolved]
  - Anger [Unknown]
  - Mass [Recovered/Resolved]
  - Dysphonia [Not Recovered/Not Resolved]
  - Inflammation [Unknown]
  - Neck pain [Not Recovered/Not Resolved]
  - Headache [Not Recovered/Not Resolved]
  - Vomiting [Not Recovered/Not Resolved]
  - Abdominal pain upper [Not Recovered/Not Resolved]
  - Injection site pain [Not Recovered/Not Resolved]
  - Malaise [Not Recovered/Not Resolved]
  - Diarrhoea [Not Recovered/Not Resolved]
  - Erythema [Unknown]

NARRATIVE: CASE EVENT DATE: 20210412
